FAERS Safety Report 7374697-0 (Version None)
Quarter: 2011Q1

REPORT INFORMATION
  Report Type: 
  Country: None (occurrence: None)
  Receive Date: 20110325
  Receipt Date: 20100805
  Transmission Date: 20110831
  Serious: No
  Sender: FDA-Public Use
  Company Number: US-MYLANLABS-2010S1014473

PATIENT
  Age: 69 Year
  Sex: Male

DRUGS (5)
  1. FENTANYL-100 [Suspect]
     Indication: BACK PAIN
     Dosage: CHANGED Q72H
     Route: 062
     Dates: start: 20100730, end: 20100805
  2. METFORMIN [Concomitant]
     Route: 048
  3. ACTOS [Concomitant]
     Route: 048
  4. DIOVAN [Concomitant]
     Route: 048
  5. LISINOPRIL [Concomitant]
     Route: 048

REACTIONS (3)
  - DRUG EFFECT DECREASED [None]
  - MUSCLE SPASMS [None]
  - MUSCULOSKELETAL STIFFNESS [None]
